FAERS Safety Report 11542751 (Version 1)
Quarter: 2015Q3

REPORT INFORMATION
  Report Type: Spontaneous
  Country: US (occurrence: US)
  Receive Date: 20150903
  Receipt Date: 20150903
  Transmission Date: 20151125
  Serious: Yes (Hospitalization, Other)
  Sender: FDA-Public Use
  Company Number: US-ELI_LILLY_AND_COMPANY-US201106003588

PATIENT
  Age: 85 Year
  Sex: Male

DRUGS (3)
  1. HUMALOG [Suspect]
     Active Substance: INSULIN LISPRO
     Dosage: 14 U, OTHER
     Dates: start: 2009
  2. HUMALOG [Suspect]
     Active Substance: INSULIN LISPRO
     Dosage: 17 U, EACH EVENING
     Dates: start: 2009
  3. HUMALOG [Suspect]
     Active Substance: INSULIN LISPRO
     Indication: DIABETES MELLITUS
     Dosage: 10 U, EACH MORNING
     Dates: start: 2009

REACTIONS (2)
  - Hypoglycaemic unconsciousness [Unknown]
  - Blood glucose decreased [Unknown]
